FAERS Safety Report 4516491-1 (Version None)
Quarter: 2004Q4

REPORT INFORMATION
  Report Type: 
  Country: None (occurrence: None)
  Receive Date: 20041012
  Receipt Date: 20040910
  Transmission Date: 20050328
  Serious: No
  Sender: FDA-Public Use
  Company Number: PHEH2004US09756

PATIENT
  Age: 37 Year
  Sex: Female

DRUGS (1)
  1. ELIDEL [Suspect]
     Indication: ECZEMA
     Dosage: QHS, TOPICAL
     Route: 061
     Dates: start: 20040809, end: 20040909

REACTIONS (1)
  - EYE IRRITATION [None]
